FAERS Safety Report 6511316-7 (Version None)
Quarter: 2009Q4

REPORT INFORMATION
  Report Type: 
  Country: None (occurrence: None)
  Receive Date: 20091222
  Receipt Date: 20090326
  Transmission Date: 20100525
  Serious: No
  Sender: FDA-Public Use
  Company Number: US-ASTRAZENECA-2009UW07865

PATIENT
  Age: 59 Year
  Sex: Male
  Weight: 99.8 kg

DRUGS (4)
  1. CRESTOR [Suspect]
     Route: 048
     Dates: start: 20081201
  2. TOPROL-XL [Concomitant]
  3. ASPIRIN [Concomitant]
     Indication: PROPHYLAXIS
  4. LISINOPRIL [Concomitant]
     Indication: HYPERTENSION

REACTIONS (1)
  - BLOOD TRIGLYCERIDES INCREASED [None]
